FAERS Safety Report 6136762-5 (Version None)
Quarter: 2009Q1

REPORT INFORMATION
  Report Type: 
  Country: None (occurrence: None)
  Receive Date: 20090330
  Receipt Date: 20090320
  Transmission Date: 20090719
  Serious: Yes (Hospitalization)
  Sender: FDA-Public Use
  Company Number: JP-PFIZER INC-2009188407

PATIENT

DRUGS (5)
  1. IRINOTECAN HCL [Suspect]
     Indication: COLON CANCER
     Dosage: 140 MG, 1 IN 2 WEEK
     Route: 042
     Dates: start: 20090127, end: 20090210
  2. CETUXIMAB [Suspect]
     Indication: COLON CANCER
     Dosage: 400 MG/M2, WEEKLY
     Route: 042
     Dates: start: 20090127, end: 20090127
  3. CETUXIMAB [Suspect]
     Dosage: 250 MG/M2, WEEKLY
     Route: 042
     Dates: start: 20090203, end: 20090210
  4. POLARAMINE [Concomitant]
     Indication: PREMEDICATION
     Dosage: 5 MG
     Route: 042
     Dates: start: 20090127
  5. DECADRON [Concomitant]
     Indication: PREMEDICATION
     Dosage: 10 MG
     Route: 042
     Dates: start: 20090127

REACTIONS (1)
  - ASTHMA [None]
